FAERS Safety Report 5807157-6 (Version None)
Quarter: 2008Q3

REPORT INFORMATION
  Report Type: 
  Country: None (occurrence: None)
  Receive Date: 20080711
  Receipt Date: 20080708
  Transmission Date: 20090109
  Serious: Yes (Other)
  Sender: FDA-Public Use
  Company Number: ES-ASTRAZENECA-2008AC01732

PATIENT
  Age: 53 Year
  Sex: Female

DRUGS (7)
  1. SEROQUEL [Suspect]
     Indication: ALCOHOLIC PSYCHOSIS
     Route: 048
     Dates: end: 20070801
  2. SEROQUEL [Interacting]
     Route: 048
     Dates: start: 20070801, end: 20070910
  3. SEROQUEL [Interacting]
  4. IDALPREM [Interacting]
     Dosage: 0.1 % 30 ML SOLUTION
     Route: 048
     Dates: end: 20070910
  5. ESERTIA [Interacting]
     Indication: ALCOHOLIC PSYCHOSIS
     Route: 048
     Dates: end: 20070910
  6. TIAPRIZAL [Interacting]
     Indication: PSYCHOTIC DISORDER
     Route: 048
     Dates: start: 20070801, end: 20070810
  7. LITHIUM CARBONATE [Concomitant]
     Indication: ALCOHOLIC PSYCHOSIS
     Route: 048

REACTIONS (3)
  - CONFUSIONAL STATE [None]
  - DRUG INTERACTION [None]
  - DYSKINESIA [None]
